FAERS Safety Report 20658188 (Version 1)
Quarter: 2022Q1

REPORT INFORMATION
  Report Type: Spontaneous
  Country: CN (occurrence: None)
  Receive Date: 20220331
  Receipt Date: 20220331
  Transmission Date: 20220423
  Serious: Yes (Other)
  Sender: FDA-Public Use
  Company Number: CN-ROCHE-3062336

PATIENT
  Age: 68 Year
  Sex: Female

DRUGS (43)
  1. MABTHERA [Suspect]
     Active Substance: RITUXIMAB
     Indication: Follicular lymphoma stage IV
     Route: 065
  2. GAZYVA [Concomitant]
     Active Substance: OBINUTUZUMAB
     Indication: Follicular lymphoma stage IV
     Route: 042
     Dates: start: 20220205
  3. GAZYVA [Concomitant]
     Active Substance: OBINUTUZUMAB
     Route: 042
     Dates: start: 20220212
  4. GAZYVA [Concomitant]
     Active Substance: OBINUTUZUMAB
     Route: 042
     Dates: start: 20220220
  5. GAZYVA [Concomitant]
     Active Substance: OBINUTUZUMAB
     Dosage: OBINUTUZUMAB + CPOD
     Dates: start: 20220302
  6. ETOPOSIDE [Concomitant]
     Active Substance: ETOPOSIDE
     Indication: Follicular lymphoma stage IV
     Dosage: CTOP-E
     Dates: end: 201701
  7. ETOPOSIDE [Concomitant]
     Active Substance: ETOPOSIDE
     Dosage: ESHAP
     Dates: end: 201806
  8. METHYLPREDNISOLONE [Concomitant]
     Active Substance: METHYLPREDNISOLONE
     Indication: Follicular lymphoma stage IV
     Dosage: ESHAP
     Dates: end: 201806
  9. CISPLATIN [Concomitant]
     Active Substance: CISPLATIN
     Indication: Follicular lymphoma stage IV
     Dosage: ESHAP, GDP
     Dates: end: 201806
  10. CYTARABINE [Concomitant]
     Active Substance: CYTARABINE
     Indication: Follicular lymphoma stage IV
     Dosage: ESHAP
     Dates: end: 201806
  11. GEMCITABINE [Concomitant]
     Active Substance: GEMCITABINE
     Indication: Follicular lymphoma stage IV
     Dosage: 03/MAY/2021 AND 27/MAY/2021, GEMOX
  12. GEMCITABINE [Concomitant]
     Active Substance: GEMCITABINE
     Dosage: GDP
  13. DEXAMETHASONE [Concomitant]
     Active Substance: DEXAMETHASONE
     Indication: Follicular lymphoma stage IV
     Dosage: 07/JUL/2021, 07/SEP/2021, 28/SEP/2021, 23/OCT/2021, 21/NOV/2021 AND 21/DEC/2021, CPOD
  14. DEXAMETHASONE [Concomitant]
     Active Substance: DEXAMETHASONE
     Dosage: OBINUTUZUMAB + CPOD
     Dates: start: 20220302
  15. DEXAMETHASONE [Concomitant]
     Active Substance: DEXAMETHASONE
     Dosage: GDP
  16. DEXAMETHASONE [Concomitant]
     Active Substance: DEXAMETHASONE
     Dosage: CPOD ON DAY 2-6 (THE 7TH CYCLE)
  17. OXALIPLATIN [Concomitant]
     Active Substance: OXALIPLATIN
     Indication: Follicular lymphoma stage IV
     Dosage: 03/MAY/2021 AND 27/MAY/2021, GEMOX
  18. DOXORUBICIN HYDROCHLORIDE [Concomitant]
     Active Substance: DOXORUBICIN HYDROCHLORIDE
     Indication: Follicular lymphoma stage IV
     Dosage: 07/JUL/2021, 07/SEP/2021, 28/SEP/2021, 23/OCT/2021, 21/NOV/2021 AND 21/DEC/2021, CPOD
  19. DOXORUBICIN HYDROCHLORIDE [Concomitant]
     Active Substance: DOXORUBICIN HYDROCHLORIDE
     Dosage: OBINUTUZUMAB + CPOD
     Dates: start: 20220302
  20. DOXORUBICIN HYDROCHLORIDE [Concomitant]
     Active Substance: DOXORUBICIN HYDROCHLORIDE
     Dosage: CPOD ON DAY 2-6 (THE 7TH CYCLE)
  21. CHLORAMBUCIL [Concomitant]
     Active Substance: CHLORAMBUCIL
     Indication: Follicular lymphoma stage IV
  22. CYCLOPHOSPHAMIDE [Concomitant]
     Active Substance: CYCLOPHOSPHAMIDE
     Indication: Follicular lymphoma stage IV
     Dosage: CHOP, CTOP
  23. CYCLOPHOSPHAMIDE [Concomitant]
     Active Substance: CYCLOPHOSPHAMIDE
     Dosage: CTOP-E
     Dates: end: 201701
  24. CYCLOPHOSPHAMIDE [Concomitant]
     Active Substance: CYCLOPHOSPHAMIDE
     Dosage: CTOP
     Dates: end: 202008
  25. CYCLOPHOSPHAMIDE [Concomitant]
     Active Substance: CYCLOPHOSPHAMIDE
     Dosage: COP
  26. CYCLOPHOSPHAMIDE [Concomitant]
     Active Substance: CYCLOPHOSPHAMIDE
     Dosage: 07/JUL/2021, 07/SEP/2021, 28/SEP/2021, 23/OCT/2021, 21/NOV/2021 AND 21//DEC/2021, CPOD
  27. CYCLOPHOSPHAMIDE [Concomitant]
     Active Substance: CYCLOPHOSPHAMIDE
     Dosage: CPOD ON DAY 2-6 (THE 7TH CYCLE)
  28. CYCLOPHOSPHAMIDE [Concomitant]
     Active Substance: CYCLOPHOSPHAMIDE
     Dosage: OBINUTUZUMAB + CPOD
     Dates: start: 20220302
  29. DOXORUBICIN [Concomitant]
     Active Substance: DOXORUBICIN
     Indication: Follicular lymphoma stage IV
     Dosage: CHOP
  30. VINCRISTINE [Concomitant]
     Active Substance: VINCRISTINE
     Indication: Follicular lymphoma stage IV
     Dosage: CHOP, CTOP
  31. VINCRISTINE [Concomitant]
     Active Substance: VINCRISTINE
     Dosage: CTOP-E
     Dates: end: 201701
  32. VINCRISTINE [Concomitant]
     Active Substance: VINCRISTINE
     Dosage: CTOP
     Dates: end: 202008
  33. VINCRISTINE [Concomitant]
     Active Substance: VINCRISTINE
     Dosage: COP
  34. VINCRISTINE [Concomitant]
     Active Substance: VINCRISTINE
     Dosage: 07/JUL/2021, 07/SEP/2021, 28/SEP/2021, 23/OCT/2021, 21/NOV/2021 AND 21//DEC/2021, CPOD
  35. VINCRISTINE [Concomitant]
     Active Substance: VINCRISTINE
     Dosage: CPOD ON DAY 2-6 (THE 7TH CYCLE)
  36. VINCRISTINE [Concomitant]
     Active Substance: VINCRISTINE
     Dosage: OBINUTUZUMAB + CPOD
     Dates: start: 20220302
  37. PREDNISONE [Concomitant]
     Active Substance: PREDNISONE
     Indication: Follicular lymphoma stage IV
     Dosage: CHOP, CTOP
  38. PREDNISONE [Concomitant]
     Active Substance: PREDNISONE
     Dosage: CTOP-E
     Dates: end: 201701
  39. PREDNISONE [Concomitant]
     Active Substance: PREDNISONE
     Dosage: CTOP
     Dates: end: 202008
  40. PREDNISONE [Concomitant]
     Active Substance: PREDNISONE
     Dosage: COP
  41. PIRARUBICIN [Concomitant]
     Active Substance: PIRARUBICIN
     Indication: Follicular lymphoma stage IV
     Dosage: CTOP
  42. PIRARUBICIN [Concomitant]
     Active Substance: PIRARUBICIN
     Dosage: CTOP-E
     Dates: end: 201701
  43. PIRARUBICIN [Concomitant]
     Active Substance: PIRARUBICIN
     Dosage: CTOP
     Dates: end: 202008

REACTIONS (3)
  - Infusion related reaction [Unknown]
  - Myelosuppression [Unknown]
  - Pneumonia [Unknown]
